FAERS Safety Report 5765327-X (Version None)
Quarter: 2008Q2

REPORT INFORMATION
  Report Type: 
  Country: None (occurrence: None)
  Receive Date: 20080609
  Receipt Date: 20080609
  Transmission Date: 20081010
  Serious: Yes (Death)
  Sender: FDA-Public Use
  Company Number: None

PATIENT
  Age: 73 Year
  Sex: Female
  Weight: 46.7205 kg

DRUGS (1)
  1. DIGITEK   .125 MG  UNK. [Suspect]
     Indication: HEART RATE IRREGULAR
     Dosage: .125 MG  UNK.  PO
     Route: 048
     Dates: start: 20080327, end: 20080410

REACTIONS (7)
  - CHEST PAIN [None]
  - CONFUSIONAL STATE [None]
  - DIARRHOEA [None]
  - DIZZINESS [None]
  - HALLUCINATION [None]
  - NAUSEA [None]
  - VOMITING [None]
